FAERS Safety Report 15337853 (Version 1)
Quarter: 2018Q3

REPORT INFORMATION
  Report Type: Spontaneous
  Country: US (occurrence: US)
  Receive Date: 20180827
  Receipt Date: 20180827
  Transmission Date: 20181010
  Serious: No
  Sender: FDA-Public Use
  Company Number: None

PATIENT
  Age: 65 Year
  Sex: Male

DRUGS (4)
  1. ATROVASTATIN [Concomitant]
     Active Substance: ATORVASTATIN CALCIUM
  2. STELARA [Suspect]
     Active Substance: USTEKINUMAB
  3. HYDROCHLOROTHIAZIDE. [Concomitant]
     Active Substance: HYDROCHLOROTHIAZIDE
  4. FLUOXETINE [Concomitant]
     Active Substance: FLUOXETINE HYDROCHLORIDE

REACTIONS (2)
  - Infusion related reaction [None]
  - Fatigue [None]

NARRATIVE: CASE EVENT DATE: 20180820
